FAERS Safety Report 18401914 (Version 1)
Quarter: 2020Q4

REPORT INFORMATION
  Report Type: Report from Study
  Country: EG (occurrence: EG)
  Receive Date: 20201019
  Receipt Date: 20201019
  Transmission Date: 20210114
  Serious: Yes (Death)
  Sender: FDA-Public Use
  Company Number: EG-NOVOPROD-759921

PATIENT
  Age: 901 Month
  Sex: Male

DRUGS (1)
  1. MIXTARD 30 HM PENFILL [Suspect]
     Active Substance: INSULIN HUMAN
     Indication: DIABETES MELLITUS
     Dosage: 25 IU, QD (5U MORNING-15U LUNCH-5U EVENING)
     Route: 058
     Dates: end: 20190426

REACTIONS (5)
  - Hyperglycaemia [Fatal]
  - Product dose omission issue [Fatal]
  - Hypoglycaemia [Fatal]
  - Dementia Alzheimer^s type [Unknown]
  - Cardiac disorder [Fatal]
